FAERS Safety Report 4987528-0 (Version None)
Quarter: 2006Q2

REPORT INFORMATION
  Report Type: 
  Country: None (occurrence: None)
  Receive Date: 20060501
  Receipt Date: 20050930
  Transmission Date: 20061013
  Serious: Yes (Hospitalization)
  Sender: FDA-Public Use
  Company Number: US-MERCK-0510USA02123

PATIENT
  Age: 63 Year
  Sex: Male
  Weight: 125 kg

DRUGS (5)
  1. VIOXX [Suspect]
     Indication: ARTHRALGIA
     Route: 048
     Dates: start: 20000725, end: 20030108
  2. VIOXX [Suspect]
     Route: 048
     Dates: start: 20000725, end: 20030108
  3. VIOXX [Suspect]
     Indication: BACK PAIN
     Route: 048
     Dates: start: 20000725, end: 20030108
  4. VIOXX [Suspect]
     Route: 048
     Dates: start: 20000725, end: 20030108
  5. ASPIRIN [Concomitant]
     Route: 048

REACTIONS (15)
  - ABDOMINAL PAIN [None]
  - ANAEMIA [None]
  - ANGINA PECTORIS [None]
  - ARTHRALGIA [None]
  - ATRIAL FIBRILLATION [None]
  - BACK PAIN [None]
  - CARDIAC FAILURE CONGESTIVE [None]
  - CHEST PAIN [None]
  - CORONARY ARTERY DISEASE [None]
  - DYSPNOEA [None]
  - HEMIPARESIS [None]
  - MITRAL VALVE INCOMPETENCE [None]
  - MYOCARDIAL INFARCTION [None]
  - SLEEP APNOEA SYNDROME [None]
  - SYNCOPE [None]
